FAERS Safety Report 7427488-6 (Version None)
Quarter: 2011Q2

REPORT INFORMATION
  Report Type: 
  Country: None (occurrence: None)
  Receive Date: 20110420
  Receipt Date: 20110407
  Transmission Date: 20111010
  Serious: Yes (Hospitalization, Other)
  Sender: FDA-Public Use
  Company Number: US-ELI_LILLY_AND_COMPANY-US201104002848

PATIENT
  Sex: Male

DRUGS (13)
  1. LISINOPRIL [Concomitant]
  2. ALPRAZOLAM [Concomitant]
  3. SIMVASTATIN [Concomitant]
  4. VITAMIN B-12 [Concomitant]
  5. COUMADIN [Concomitant]
     Dosage: UNK
     Dates: start: 20101001, end: 20110328
  6. FEXOFENADINE [Concomitant]
  7. OMEPRAZOLE [Concomitant]
  8. FORTEO [Suspect]
     Indication: OSTEOPOROSIS
     Dosage: 20 UG, QD
     Dates: start: 20110301
  9. CYPROHEPTADINE HCL [Concomitant]
  10. ETODOLAC [Concomitant]
  11. FLUTICASONE PROPIONATE [Concomitant]
  12. FISH OIL [Concomitant]
  13. LEVOTHYROXINE SODIUM [Concomitant]

REACTIONS (5)
  - INCOHERENT [None]
  - HYPOTENSION [None]
  - OXYGEN SATURATION DECREASED [None]
  - URINARY TRACT INFECTION BACTERIAL [None]
  - MEMORY IMPAIRMENT [None]
